FAERS Safety Report 6155949-9 (Version None)
Quarter: 2009Q2

REPORT INFORMATION
  Report Type: 
  Country: None (occurrence: None)
  Receive Date: 20090415
  Receipt Date: 20090408
  Transmission Date: 20091009
  Serious: Yes (Death)
  Sender: FDA-Public Use
  Company Number: JP-BRISTOL-MYERS SQUIBB COMPANY-14516868

PATIENT
  Age: 75 Year
  Sex: Male
  Weight: 50 kg

DRUGS (7)
  1. ERBITUX [Suspect]
     Indication: RECTAL CANCER
     Dosage: FIRST INFUSION ON 02DEC08-600MG IV ONCE WEEKLY; DOSE REDUCED TO 400MG ON 09DEC08.
     Route: 042
     Dates: start: 20081209, end: 20090216
  2. POLARAMINE [Concomitant]
     Indication: PREMEDICATION
     Dosage: 1 DOSAGE FORM= 1 AMPULE
     Route: 042
     Dates: start: 20081202, end: 20090216
  3. DECADRON [Concomitant]
     Indication: PREMEDICATION
     Dosage: 4.5714 MG
     Route: 042
     Dates: start: 20081202, end: 20090216
  4. SEROTONE [Concomitant]
     Indication: ANTIEMETIC SUPPORTIVE CARE
     Dosage: 1 DOSAGE FORM= 1 AMPULE.
     Route: 042
     Dates: start: 20081202, end: 20090216
  5. IRINOTECAN HCL [Concomitant]
     Indication: RECTAL CANCER
     Route: 042
     Dates: start: 20081202, end: 20090202
  6. FLUOROURACIL [Concomitant]
     Indication: RECTAL CANCER
     Dosage: 1750MG, IV DRIP,02DEC08-03FEB09(63 DAYS).
     Route: 040
     Dates: start: 20081202, end: 20090202
  7. LEUCOVORIN CALCIUM [Concomitant]
     Indication: RECTAL CANCER
     Route: 042
     Dates: start: 20081202, end: 20090202

REACTIONS (2)
  - PLEURAL EFFUSION [None]
  - RIGHT VENTRICULAR FAILURE [None]
